FAERS Safety Report 16903301 (Version 1)
Quarter: 2019Q4

REPORT INFORMATION
  Report Type: Spontaneous
  Country: US (occurrence: US)
  Receive Date: 20190817
  Receipt Date: 20190817
  Transmission Date: 20200122
  Serious: No
  Sender: FDA-Public Use
  Company Number: None

PATIENT
  Age: 58 Year
  Sex: Female

DRUGS (2)
  1. LETROZOLE. [Concomitant]
     Active Substance: LETROZOLE
  2. VERZENIO [Suspect]
     Active Substance: ABEMACICLIB
     Dates: start: 201906

REACTIONS (2)
  - Dizziness [None]
  - Vertigo [None]

NARRATIVE: CASE EVENT DATE: 20190817
